FAERS Safety Report 23092954 (Version 3)
Quarter: 2025Q1

REPORT INFORMATION
  Report Type: Spontaneous
  Country: US (occurrence: US)
  Receive Date: 20231021
  Receipt Date: 20250320
  Transmission Date: 20250409
  Serious: No
  Sender: SANOFI AVENTIS
  Company Number: US-SA-SAC20231020001679

PATIENT
  Age: 5 Year
  Sex: Female
  Weight: 40.1 kg

DRUGS (2)
  1. DUPIXENT [Suspect]
     Active Substance: DUPILUMAB
     Indication: Dermatitis
     Route: 058
  2. DUPIXENT [Suspect]
     Active Substance: DUPILUMAB
     Dosage: 200 MG, QOW
     Route: 058

REACTIONS (10)
  - Lip swelling [Recovered/Resolved]
  - Dry skin [Unknown]
  - Dermatitis [Unknown]
  - Feeling hot [Unknown]
  - Fatigue [Unknown]
  - Sensitivity to weather change [Unknown]
  - Stress [Unknown]
  - Pruritus [Unknown]
  - Product use in unapproved indication [Unknown]
  - Inappropriate schedule of product administration [Unknown]
